FAERS Safety Report 10394165 (Version 1)
Quarter: 2014Q3

REPORT INFORMATION
  Report Type: Spontaneous
  Country: JP (occurrence: JP)
  Receive Date: 20140819
  Receipt Date: 20140819
  Transmission Date: 20150326
  Serious: Yes (Death)
  Sender: FDA-Public Use
  Company Number: PHHY2012JP135101

PATIENT
  Age: 92 Year
  Sex: Female

DRUGS (4)
  1. EXJADE [Suspect]
     Active Substance: DEFERASIROX
     Dosage: 500 UNK, UNK
  2. EXJADE [Suspect]
     Active Substance: DEFERASIROX
     Dosage: 375 UNK, UNK
  3. EXJADE [Suspect]
     Active Substance: DEFERASIROX
     Dosage: 125 UNK, UNK
  4. EXJADE [Suspect]
     Active Substance: DEFERASIROX
     Indication: APLASTIC ANAEMIA
     Dosage: 50 MG, DAILY

REACTIONS (2)
  - Dysphagia [Unknown]
  - Death [Fatal]
